FAERS Safety Report 6968537-9 (Version None)
Quarter: 2010Q3

REPORT INFORMATION
  Report Type: 
  Country: None (occurrence: None)
  Receive Date: 20100907
  Receipt Date: 20100827
  Transmission Date: 20110219
  Serious: Yes (Hospitalization, Other)
  Sender: FDA-Public Use
  Company Number: US-PFIZER INC-2010108326

PATIENT
  Sex: Male

DRUGS (1)
  1. SUTENT [Suspect]
     Indication: RENAL CELL CARCINOMA
     Dosage: 50 MG, 1X/DAY
     Route: 048
     Dates: start: 20100806

REACTIONS (5)
  - CARBON DIOXIDE INCREASED [None]
  - CARDIAC ENZYMES INCREASED [None]
  - CONTUSION [None]
  - JOINT SWELLING [None]
  - OEDEMA PERIPHERAL [None]
